FAERS Safety Report 19416006 (Version 1)
Quarter: 2021Q2

REPORT INFORMATION
  Report Type: Spontaneous
  Country: US (occurrence: US)
  Receive Date: 20210614
  Receipt Date: 20210614
  Transmission Date: 20210717
  Serious: Yes (Other)
  Sender: FDA-Public Use
  Company Number: None

PATIENT
  Age: 66 Year
  Sex: Female

DRUGS (1)
  1. GLATIRAMER PFS [Suspect]
     Active Substance: GLATIRAMER ACETATE
     Route: 058
     Dates: start: 202105

REACTIONS (3)
  - Injection site bruising [None]
  - Injection related reaction [None]
  - Pain [None]

NARRATIVE: CASE EVENT DATE: 20210517
